FAERS Safety Report 7867141-8 (Version None)
Quarter: 2011Q4

REPORT INFORMATION
  Report Type: 
  Country: None (occurrence: None)
  Receive Date: 20111028
  Receipt Date: 20111021
  Transmission Date: 20120403
  Serious: Yes (Hospitalization, Other)
  Sender: FDA-Public Use
  Company Number: US-BRISTOL-MYERS SQUIBB COMPANY-14312821

PATIENT
  Age: 68 Year
  Sex: Female
  Weight: 49 kg

DRUGS (2)
  1. CISPLATIN [Suspect]
     Indication: HEAD AND NECK CANCER
  2. ERBITUX [Suspect]
     Indication: HEAD AND NECK CANCER
     Dosage: THERAPY STARTED ON 01-JUL-2008, LAST TOTAL DOSE WAS 1100 MG ON 18-AUG-2008.
     Dates: start: 20080708, end: 20080708

REACTIONS (12)
  - HYPOTENSION [None]
  - PYREXIA [None]
  - DECREASED APPETITE [None]
  - ANAEMIA [None]
  - STOMATITIS [None]
  - HYPOKALAEMIA [None]
  - DEHYDRATION [None]
  - LYMPHOPENIA [None]
  - HYPOCALCAEMIA [None]
  - HYPOALBUMINAEMIA [None]
  - HYPOMAGNESAEMIA [None]
  - VOMITING [None]
